FAERS Safety Report 18867005 (Version 1)
Quarter: 2021Q1

REPORT INFORMATION
  Report Type: Report from Study
  Country: CA (occurrence: CA)
  Receive Date: 20210208
  Receipt Date: 20210208
  Transmission Date: 20210420
  Serious: Yes (Other)
  Sender: FDA-Public Use
  Company Number: CA-AMGEN-CANSL2018054203

PATIENT
  Age: 68 Year
  Sex: Female

DRUGS (12)
  1. VITAMIN E [Concomitant]
     Active Substance: .ALPHA.-TOCOPHEROL
     Dosage: 400 UNIT, UNK
  2. VITAMIN C [Concomitant]
     Active Substance: ASCORBIC ACID
  3. PROLIA [Suspect]
     Active Substance: DENOSUMAB
     Indication: PRODUCT USED FOR UNKNOWN INDICATION
     Dosage: 60 MG/ML, UNK
     Route: 065
     Dates: start: 20180417
  4. EVENING PRIMROSE OIL [Concomitant]
     Active Substance: EVENING PRIMROSE OIL\HERBALS
  5. CALCIUM [Concomitant]
     Active Substance: CALCIUM
  6. L?ARGININE [Concomitant]
     Active Substance: ARGININE
  7. LUTEIN [Concomitant]
     Active Substance: LUTEIN
  8. VIT D [Concomitant]
     Active Substance: VITAMIN D NOS
  9. ALPHA LIPOIC ACID [Concomitant]
     Active Substance: .ALPHA.-LIPOIC ACID
  10. BABY ASPIRIN [Concomitant]
     Active Substance: ASPIRIN
  11. VITAMIN B [Concomitant]
     Active Substance: VITAMIN B
     Dosage: 100 UNK, UNK
  12. TURMERIC [Concomitant]
     Active Substance: HERBALS\TURMERIC

REACTIONS (4)
  - Abdominal discomfort [Unknown]
  - Syncope [Recovered/Resolved]
  - Diarrhoea [Unknown]
  - Influenza [Unknown]

NARRATIVE: CASE EVENT DATE: 201804
